FAERS Safety Report 6397773-8 (Version None)
Quarter: 2009Q4

REPORT INFORMATION
  Report Type: 
  Country: None (occurrence: None)
  Receive Date: 20091007
  Receipt Date: 20091001
  Transmission Date: 20100525
  Serious: Yes (Life-Threatening)
  Sender: FDA-Public Use
  Company Number: 394977

PATIENT
  Age: 5 Year
  Sex: Male

DRUGS (1)
  1. EPINEPHRINE [Suspect]
     Dosage: 30 ML OF 1:1000, INFECTION

REACTIONS (4)
  - BLOOD PRESSURE INCREASED [None]
  - PULMONARY OEDEMA [None]
  - VENTRICULAR TACHYCARDIA [None]
  - WRONG DRUG ADMINISTERED [None]
